FAERS Safety Report 23122383 (Version 1)
Quarter: 2023Q4

REPORT INFORMATION
  Report Type: Spontaneous
  Country: US (occurrence: US)
  Receive Date: 20231030
  Receipt Date: 20231030
  Transmission Date: 20240110
  Serious: Yes (Hospitalization, Other)
  Sender: FDA-Public Use
  Company Number: US-CADILA HEALTHCARE LIMITED-US-ZYDUS-099257

PATIENT

DRUGS (1)
  1. AMLODIPINE [Suspect]
     Active Substance: AMLODIPINE BESYLATE
     Indication: Suicide attempt
     Dosage: 52 PILLS OF AMLODIPINE 10MG
     Route: 065

REACTIONS (11)
  - Distributive shock [Unknown]
  - Hypoxia [Recovering/Resolving]
  - Hypokalaemia [Unknown]
  - Lactic acidosis [Unknown]
  - Non-cardiogenic pulmonary oedema [Unknown]
  - Cardiac arrest [Unknown]
  - Brain injury [Unknown]
  - Hypotension [Recovering/Resolving]
  - Tachypnoea [Recovering/Resolving]
  - Toxicity to various agents [Unknown]
  - Overdose [Unknown]
